FAERS Safety Report 9179554 (Version 1)
Quarter: 2012Q4

REPORT INFORMATION
  Report Type: 
  Country: US (occurrence: US)
  Receive Date: 20121029
  Receipt Date: 20121029
  Transmission Date: 20130627
  Serious: No
  Sender: FDA-Public Use
  Company Number: US-AMGEN-USASP2012056272

PATIENT
  Age: 66 Year
  Sex: Female

DRUGS (3)
  1. ENBREL [Suspect]
     Indication: PSORIATIC ARTHROPATHY
     Dosage: 50 mg, qwk
     Route: 058
  2. ENBREL [Suspect]
     Indication: RHEUMATOID ARTHRITIS
  3. PROLIA [Concomitant]
     Indication: OSTEOPOROSIS
     Dosage: UNK

REACTIONS (1)
  - Osteoporosis [Not Recovered/Not Resolved]
